FAERS Safety Report 8041577-7 (Version None)
Quarter: 2012Q1

REPORT INFORMATION
  Report Type: 
  Country: None (occurrence: None)
  Receive Date: 20120112
  Receipt Date: 20120104
  Transmission Date: 20120608
  Serious: Yes (Other)
  Sender: FDA-Public Use
  Company Number: IT-PFIZER INC-2012005968

PATIENT
  Age: 66 Year
  Sex: Female

DRUGS (3)
  1. SIMVASTATIN [Concomitant]
  2. REPAGLINIDE [Concomitant]
  3. PEPTAZOL [Suspect]
     Indication: GASTROOESOPHAGEAL REFLUX DISEASE
     Dosage: 60 MG, DAILY
     Route: 048
     Dates: start: 20091125, end: 20111117

REACTIONS (1)
  - BREAST HAEMORRHAGE [None]
